FAERS Safety Report 6273163-3 (Version None)
Quarter: 2009Q3

REPORT INFORMATION
  Report Type: 
  Country: None (occurrence: None)
  Receive Date: 20090720
  Receipt Date: 20090716
  Transmission Date: 20100115
  Serious: Yes (Other)
  Sender: FDA-Public Use
  Company Number: US-ALLERGAN-0907736US

PATIENT
  Age: 19 Year
  Sex: Male
  Weight: 65 kg

DRUGS (3)
  1. BOTOX [Suspect]
     Indication: MUSCLE SPASTICITY
     Dosage: 400 UNITS, SINGLE
     Route: 030
     Dates: start: 20090511, end: 20090511
  2. NASONEX [Concomitant]
     Dosage: UNK, PRN
  3. ALLEGRA [Concomitant]
     Dosage: UNK, PRN

REACTIONS (1)
  - ACCOMMODATION DISORDER [None]
